FAERS Safety Report 8859683 (Version 1)
Quarter: 2012Q4

REPORT INFORMATION
  Report Type: Report from Study
  Country: US (occurrence: US)
  Receive Date: 20121025
  Receipt Date: 20121025
  Transmission Date: 20130627
  Serious: No
  Sender: FDA-Public Use
  Company Number: US-ABBOTT-12P-163-0905918-00

PATIENT
  Age: 23 None
  Sex: Female
  Weight: 86.26 kg

DRUGS (2)
  1. LUPRON DEPOT 3.75 MG [Suspect]
     Indication: ENDOMETRIOSIS
     Route: 030
     Dates: start: 20120201
  2. FLONASE [Concomitant]
     Indication: HYPERSENSITIVITY

REACTIONS (6)
  - Migraine [Recovering/Resolving]
  - Nausea [Recovered/Resolved]
  - Vision blurred [Recovering/Resolving]
  - Eye pruritus [Recovered/Resolved]
  - Vomiting [Recovered/Resolved]
  - Hot flush [Not Recovered/Not Resolved]
